FAERS Safety Report 9191252 (Version 3)
Quarter: 2013Q2

REPORT INFORMATION
  Report Type: Spontaneous
  Country: IT (occurrence: IT)
  Receive Date: 20130326
  Receipt Date: 20130502
  Transmission Date: 20140414
  Serious: Yes (Hospitalization)
  Sender: FDA-Public Use
  Company Number: IT-BRISTOL-MYERS SQUIBB COMPANY-18595769

PATIENT
  Age: 83 Year
  Sex: Male

DRUGS (4)
  1. IRBESARTAN [Suspect]
     Indication: HYPERTENSION
     Route: 048
     Dates: start: 20100101, end: 20130125
  2. LASITONE [Suspect]
     Indication: HYPERTENSION
     Dosage: 1DF: 1 UNIT?25MG+37MG HARD CAPS
     Route: 048
     Dates: start: 20100101, end: 20130125
  3. RYTMONORM [Concomitant]
     Dosage: 325MG CAPS
  4. ACETYLSALICYLIC ACID [Concomitant]
     Dosage: 100MG TABS

REACTIONS (3)
  - Renal failure acute [Recovering/Resolving]
  - Metabolic acidosis [Recovering/Resolving]
  - Hyperkalaemia [Recovering/Resolving]
